FAERS Safety Report 5635910-0 (Version None)
Quarter: 2008Q1

REPORT INFORMATION
  Report Type: 
  Country: None (occurrence: None)
  Receive Date: 20080219
  Receipt Date: 20080131
  Transmission Date: 20080703
  Serious: Yes (Hospitalization)
  Sender: FDA-Public Use
  Company Number: DSA_31426_2008

PATIENT
  Sex: Female

DRUGS (11)
  1. TEMESTA /00273201/ (TEMESTA - LORAZEPAM) (NOT SPECIFIED) [Suspect]
     Indication: DRUG USE FOR UNKNOWN INDICATION
     Dosage: (DF ORAL)
     Route: 048
  2. CORDARONE [Suspect]
     Indication: ISCHAEMIC CARDIOMYOPATHY
     Dosage: (200 MG 5X/WEEK ORAL)
     Route: 048
     Dates: end: 20070309
  3. ADANCOR (ADANCOR - NICORANDIL) 20 MG [Suspect]
     Indication: ISCHAEMIC CARDIOMYOPATHY
     Dosage: (20 MG QD ORAL)
     Route: 048
  4. BURINEX (BURINEX - BUMETANIDE) 2 MG (NOT SPECIFIED) [Suspect]
     Dosage: (2 MG QD ORAL)
     Route: 048
  5. CELECTOL [Suspect]
     Indication: ISCHAEMIC CARDIOMYOPATHY
     Dosage: (200 MG QD ORAL)
     Route: 048
  6. DISCOTRINE (DISCOTRINE - GLYCERYL TRINITRATE) (NOT SPECIFIED) [Suspect]
     Indication: DRUG USE FOR UNKNOWN INDICATION
     Dosage: (DF TRANSDERMAL)
     Route: 062
  7. LANZOR (LANZOR - LANSOPRAZOLE) [Suspect]
     Indication: DRUG USE FOR UNKNOWN INDICATION
     Dosage: (DF ORAL)
     Route: 048
  8. NOCTRAN 10 (NOCTRAN 10 - ACEPRAMAZINE/ACEPROMETAZINE, CLORAZEPATE DIPO [Suspect]
     Indication: DRUG USE FOR UNKNOWN INDICATION
     Dosage: (DF ORAL)
     Route: 048
  9. OROCAL /00108001/ (OROCAL - CALCIUM CARBONATE) [Suspect]
     Indication: DRUG USE FOR UNKNOWN INDICATION
     Dosage: (ORAL)
     Route: 048
  10. SINTROM [Suspect]
     Indication: ARRHYTHMIA
     Dosage: (0.25 MG QD ORAL)
     Route: 048
     Dates: end: 20070302
  11. ZOLOFT [Suspect]
     Indication: DEPRESSION
     Dosage: (2 DF QD DF ORAL)
     Route: 048

REACTIONS (2)
  - HYPOTHYROIDISM [None]
  - PULMONARY FIBROSIS [None]
